FAERS Safety Report 15345975 (Version 2)
Quarter: 2018Q3

REPORT INFORMATION
  Report Type: Report from Study
  Country: None (occurrence: CA)
  Receive Date: 20180904
  Receipt Date: 20180928
  Transmission Date: 20181010
  Serious: Yes (Other)
  Sender: FDA-Public Use
  Company Number: CA-ABBVIE-18K-028-2472741-00

PATIENT
  Age: 37 Year
  Sex: Male

DRUGS (1)
  1. HUMIRA [Suspect]
     Active Substance: ADALIMUMAB
     Indication: CROHN^S DISEASE
     Route: 058
     Dates: start: 20171213

REACTIONS (7)
  - Abdominal distension [Unknown]
  - Gastrointestinal sounds abnormal [Unknown]
  - Pain [Recovered/Resolved]
  - Intestinal obstruction [Not Recovered/Not Resolved]
  - Gastrointestinal motility disorder [Unknown]
  - Tenderness [Unknown]
  - Abnormal faeces [Unknown]

NARRATIVE: CASE EVENT DATE: 201808
